FAERS Safety Report 9825344 (Version 2)
Quarter: 2014Q4

REPORT INFORMATION
  Report Type: Spontaneous
  Country: US (occurrence: None)
  Receive Date: 20131028
  Receipt Date: 20141015
  Transmission Date: 20150529
  Serious: Yes (Hospitalization)
  Sender: FDA-Public Use
  Company Number: 2013US002466

PATIENT
  Age: 44 Year
  Sex: Female
  Weight: 53 kg

DRUGS (1)
  1. ICLUSIG [Suspect]
     Active Substance: PONATINIB
     Indication: ACUTE MYELOID LEUKAEMIA
     Dosage: 30 MG, QD, ORAL
     Route: 048

REACTIONS (1)
  - Pyrexia [None]

NARRATIVE: CASE EVENT DATE: 20130812
